FAERS Safety Report 19289700 (Version 1)
Quarter: 2021Q2

REPORT INFORMATION
  Report Type: Spontaneous
  Country: NO (occurrence: NO)
  Receive Date: 20210521
  Receipt Date: 20210521
  Transmission Date: 20210717
  Serious: Yes (Hospitalization)
  Sender: FDA-Public Use
  Company Number: NO-ELI_LILLY_AND_COMPANY-NO202105008491

PATIENT
  Age: 53 Year
  Sex: Female

DRUGS (4)
  1. ZYPADHERA [Suspect]
     Active Substance: OLANZAPINE PAMOATE
     Indication: PSYCHOTIC DISORDER
     Dosage: 405 MG, EVERY 4 WEEKS
     Route: 065
     Dates: start: 20190920, end: 20210414
  2. ZYPADHERA [Suspect]
     Active Substance: OLANZAPINE PAMOATE
     Indication: PSYCHOTIC DISORDER
     Dosage: 405 MG, EVERY 4 WEEKS
     Route: 065
     Dates: start: 20190920, end: 20210414
  3. ZYPADHERA [Suspect]
     Active Substance: OLANZAPINE PAMOATE
     Indication: PSYCHOTIC DISORDER
     Dosage: 405 MG, EVERY 4 WEEKS
     Route: 065
     Dates: start: 20190920, end: 20210414
  4. OMEGA 3 [FISH OIL] [Concomitant]
     Active Substance: FISH OIL
     Indication: PRODUCT USED FOR UNKNOWN INDICATION

REACTIONS (2)
  - Abscess [Recovered/Resolved with Sequelae]
  - Epistaxis [Unknown]

NARRATIVE: CASE EVENT DATE: 20210418
